FAERS Safety Report 8372317-X (Version None)
Quarter: 2012Q2

REPORT INFORMATION
  Report Type: 
  Country: None (occurrence: None)
  Receive Date: 20120521
  Receipt Date: 20120518
  Transmission Date: 20120825
  Serious: Yes (Other)
  Sender: FDA-Public Use
  Company Number: US-PFIZER INC-2012121495

PATIENT
  Sex: Female
  Weight: 68.027 kg

DRUGS (2)
  1. CHANTIX [Suspect]
     Indication: SMOKING CESSATION THERAPY
     Dosage: 0.5 MG, UNK
     Route: 048
     Dates: start: 20120501, end: 20120501
  2. CHANTIX [Suspect]
     Dosage: UNK
     Route: 048
     Dates: start: 20120501, end: 20120518

REACTIONS (4)
  - PARANOIA [None]
  - ANXIETY [None]
  - MUSCLE TWITCHING [None]
  - TREMOR [None]
